FAERS Safety Report 9337409 (Version 1)
Quarter: 2013Q2

REPORT INFORMATION
  Report Type: Spontaneous
  Country: US (occurrence: US)
  Receive Date: 20130607
  Receipt Date: 20130607
  Transmission Date: 20140414
  Serious: Yes (Hospitalization)
  Sender: FDA-Public Use
  Company Number: US-ROCHE-1230781

PATIENT
  Age: 36 Year
  Sex: Female

DRUGS (6)
  1. XOLAIR [Suspect]
     Indication: HYPERSENSITIVITY
     Route: 058
     Dates: start: 2011, end: 20130415
  2. ALLERGY SHOTS [Concomitant]
     Indication: HYPERSENSITIVITY
     Route: 065
  3. EPIPEN [Concomitant]
     Indication: HYPERSENSITIVITY
     Route: 058
  4. ZYRTEC [Concomitant]
     Route: 048
  5. SINGULAIR [Concomitant]
     Route: 048
  6. ALLEGRA-D [Concomitant]
     Route: 048

REACTIONS (12)
  - Anaphylactic reaction [Recovered/Resolved]
  - Vomiting [Recovered/Resolved]
  - Diarrhoea [Recovered/Resolved]
  - Muscle spasms [Recovered/Resolved]
  - Influenza like illness [Recovered/Resolved]
  - Swelling face [Recovered/Resolved]
  - Abdominal pain [Recovered/Resolved]
  - Dehydration [Recovered/Resolved]
  - Nausea [Recovered/Resolved]
  - Abdominal discomfort [Not Recovered/Not Resolved]
  - Feeling abnormal [Not Recovered/Not Resolved]
  - Upper-airway cough syndrome [Not Recovered/Not Resolved]
